FAERS Safety Report 6871469-8 (Version None)
Quarter: 2010Q3

REPORT INFORMATION
  Report Type: 
  Country: None (occurrence: None)
  Receive Date: 20100723
  Receipt Date: 20100708
  Transmission Date: 20110219
  Serious: Yes (Other)
  Sender: FDA-Public Use
  Company Number: US-BAYER-200943450NA

PATIENT
  Age: 56 Year
  Sex: Female
  Weight: 86 kg

DRUGS (20)
  1. MAGNEVIST [Suspect]
     Indication: NUCLEAR MAGNETIC RESONANCE IMAGING
     Dates: start: 20071004, end: 20071004
  2. MAGNEVIST [Suspect]
     Dates: start: 20030424, end: 20030424
  3. MAGNEVIST [Suspect]
     Dates: start: 20070710, end: 20070710
  4. UNSPECIFIED GADOLINIUM BASED CONTRAST AGENT [Suspect]
     Indication: NUCLEAR MAGNETIC RESONANCE IMAGING BRAIN
     Dates: start: 20030424, end: 20030424
  5. PROGRAF [Concomitant]
  6. AZATHIOPRINE [Concomitant]
  7. NORVASC [Concomitant]
  8. NEXIUM [Concomitant]
  9. LANTUS [Concomitant]
  10. CELLCEPT [Concomitant]
  11. VENOFER [Concomitant]
     Dosage: QWK
  12. INSULIN [Concomitant]
  13. CYCLOSPORINE [Concomitant]
  14. MEDROXYPROGESTERONE [Concomitant]
  15. EPOGEN [Concomitant]
     Dosage: 14,400 U QWK
  16. THYMOGLOBULIN [Concomitant]
  17. PREDNISONE [Concomitant]
  18. PHOSLO [Concomitant]
  19. RENAGEL [Concomitant]
     Dosage: WITH MEALS
  20. METOPROLOL SUCCINATE [Concomitant]
     Dates: start: 20070101

REACTIONS (23)
  - ASTHENIA [None]
  - BLISTER [None]
  - DYSPNOEA [None]
  - ERYTHEMA [None]
  - GAIT DISTURBANCE [None]
  - HYPERTONIA [None]
  - HYPOAESTHESIA [None]
  - JOINT RANGE OF MOTION DECREASED [None]
  - JOINT STIFFNESS [None]
  - MUSCLE TIGHTNESS [None]
  - MUSCULAR WEAKNESS [None]
  - MUSCULOSKELETAL STIFFNESS [None]
  - NEPHROGENIC SYSTEMIC FIBROSIS [None]
  - OEDEMA PERIPHERAL [None]
  - PAIN [None]
  - PAIN IN EXTREMITY [None]
  - PRURITUS GENERALISED [None]
  - SCAB [None]
  - SKIN DISCOLOURATION [None]
  - SKIN EXFOLIATION [None]
  - SKIN HYPERPIGMENTATION [None]
  - SKIN INDURATION [None]
  - SKIN TIGHTNESS [None]
